FAERS Safety Report 7689713-6 (Version None)
Quarter: 2011Q3

REPORT INFORMATION
  Report Type: 
  Country: None (occurrence: None)
  Receive Date: 20110817
  Receipt Date: 20110404
  Transmission Date: 20111222
  Serious: Yes (Hospitalization)
  Sender: FDA-Public Use
  Company Number: AU-AMGEN-AUSCT2011018376

PATIENT

DRUGS (3)
  1. CISPLATIN [Concomitant]
  2. PANITUMUMAB [Suspect]
     Indication: GASTROOESOPHAGEAL CANCER
  3. DOCETAXEL [Concomitant]

REACTIONS (2)
  - ORTHOSTATIC HYPOTENSION [None]
  - ATRIAL FLUTTER [None]
